FAERS Safety Report 14808825 (Version 3)
Quarter: 2018Q2

REPORT INFORMATION
  Report Type: Spontaneous
  Country: US (occurrence: US)
  Receive Date: 20180425
  Receipt Date: 20180508
  Transmission Date: 20180711
  Serious: No
  Sender: FDA-Public Use
  Company Number: US-009507513-1804USA007929

PATIENT
  Age: 27 Year
  Sex: Female
  Weight: 68.03 kg

DRUGS (1)
  1. NEXPLANON [Suspect]
     Active Substance: ETONOGESTREL
     Indication: CONTRACEPTION
     Dosage: 68 MG IN UNSPECIFIED ARM, UNK
     Route: 059
     Dates: start: 20180416, end: 20180416

REACTIONS (4)
  - Complication of device insertion [Unknown]
  - Device difficult to use [Unknown]
  - Drug dispensing error [Unknown]
  - Product quality issue [Unknown]

NARRATIVE: CASE EVENT DATE: 20180416
